FAERS Safety Report 21921559 (Version 6)
Quarter: 2025Q1

REPORT INFORMATION
  Report Type: Spontaneous
  Country: US (occurrence: US)
  Receive Date: 20230127
  Receipt Date: 20250214
  Transmission Date: 20250408
  Serious: No
  Sender: PFIZER
  Company Number: US-PFIZER INC-PV202300017060

PATIENT
  Age: 65 Year
  Sex: Female

DRUGS (12)
  1. IBRANCE [Suspect]
     Active Substance: PALBOCICLIB
     Indication: Breast cancer metastatic
  2. IBRANCE [Suspect]
     Active Substance: PALBOCICLIB
     Route: 048
     Dates: start: 20221028
  3. IBRANCE [Suspect]
     Active Substance: PALBOCICLIB
     Route: 048
     Dates: start: 20230530
  4. CELEBREX [Concomitant]
     Active Substance: CELECOXIB
     Indication: Osteoarthritis
     Dosage: 200 MG, 2X/DAY (TAKE ONE CAPSULE TWICE DAILY AS NEEDED)
     Route: 048
     Dates: start: 20241101
  5. LOMOTIL [Concomitant]
     Active Substance: ATROPINE SULFATE\DIPHENOXYLATE HYDROCHLORIDE
     Indication: Diarrhoea
     Dosage: 1 DF, 4X/DAY (TAKE 1 TABLET 4 TIMES DAILY)
     Route: 048
     Dates: start: 20220701
  6. LOMOTIL [Concomitant]
     Active Substance: ATROPINE SULFATE\DIPHENOXYLATE HYDROCHLORIDE
     Dosage: 1 DF, 4X/DAY (TAKE 1 TABLET 4 TIMES DAILY)
     Route: 048
     Dates: start: 20241213
  7. NEURONTIN [Concomitant]
     Active Substance: GABAPENTIN
     Indication: Neuralgia
     Dosage: 2 DF, DAILY (2 TABLETS AT NIGHT)
     Dates: start: 20220902
  8. NEURONTIN [Concomitant]
     Active Substance: GABAPENTIN
     Indication: Menopausal symptoms
     Dosage: 2 DF, DAILY (2 TABLETS AT NIGHT)
     Dates: start: 20231121
  9. NEURONTIN [Concomitant]
     Active Substance: GABAPENTIN
     Indication: Neuralgia
     Dosage: 600 MG, 1X/DAY (TAKE TWO CAPSULES BY MOUTH ONCE NIGHTLY)
     Route: 048
     Dates: start: 20240927
  10. NEURONTIN [Concomitant]
     Active Substance: GABAPENTIN
     Indication: Menopausal symptoms
  11. EFFEXOR XR [Concomitant]
     Active Substance: VENLAFAXINE HYDROCHLORIDE
     Indication: Menopausal symptoms
     Dosage: 150 MG, 1X/DAY (TAKE 1 CAPSULE DAILY WITH BREAKFAST)
     Route: 048
     Dates: start: 20220121
  12. EFFEXOR XR [Concomitant]
     Active Substance: VENLAFAXINE HYDROCHLORIDE
     Dosage: 150 MG, 1X/DAY (TAKE 1 CAPSULE DAILY WITH BREAKFAST)
     Route: 048
     Dates: start: 20240923

REACTIONS (1)
  - Illness [Unknown]
